FAERS Safety Report 6361515-2 (Version None)
Quarter: 2009Q3

REPORT INFORMATION
  Report Type: 
  Country: None (occurrence: None)
  Receive Date: 20090918
  Receipt Date: 20090909
  Transmission Date: 20100115
  Serious: Yes (Life-Threatening, Other)
  Sender: FDA-Public Use
  Company Number: US-JNJFOC-20090802320

PATIENT
  Weight: 58.97 kg

DRUGS (3)
  1. REMICADE [Suspect]
     Indication: COLITIS ULCERATIVE
     Route: 042
     Dates: start: 20070901, end: 20090520
  2. REMICADE [Suspect]
     Indication: CROHN'S DISEASE
     Route: 042
     Dates: start: 20070901, end: 20090520
  3. COLAZAL [Concomitant]
     Indication: COLITIS ULCERATIVE

REACTIONS (1)
  - MALIGNANT MELANOMA IN SITU [None]
